FAERS Safety Report 15835351 (Version 2)
Quarter: 2019Q1

REPORT INFORMATION
  Report Type: Report from Study
  Country: US (occurrence: US)
  Receive Date: 20190117
  Receipt Date: 20190121
  Transmission Date: 20190417
  Serious: No
  Sender: FDA-Public Use
  Company Number: PHEH2019US001500

PATIENT
  Sex: Female
  Weight: 112.4 kg

DRUGS (3)
  1. COSENTYX [Suspect]
     Active Substance: SECUKINUMAB
     Indication: PSORIASIS
     Dosage: 150 MG, QW FOR 5 WEEKS
     Route: 058
  2. COSENTYX [Suspect]
     Active Substance: SECUKINUMAB
     Dosage: 150 MG, UNK
     Route: 058
     Dates: start: 20181219
  3. COSENTYX [Suspect]
     Active Substance: SECUKINUMAB
     Indication: PSORIATIC ARTHROPATHY
     Dosage: 300 MG, QW
     Route: 058
     Dates: start: 20181207

REACTIONS (7)
  - Nasopharyngitis [Unknown]
  - Sinus congestion [Unknown]
  - Hyperhidrosis [Unknown]
  - Lymphadenopathy [Unknown]
  - Chest discomfort [Unknown]
  - Hypersomnia [Unknown]
  - Pharyngeal erythema [Unknown]
